FAERS Safety Report 17233148 (Version 1)
Quarter: 2020Q1

REPORT INFORMATION
  Report Type: Spontaneous
  Country: SE (occurrence: SE)
  Receive Date: 20200104
  Receipt Date: 20200104
  Transmission Date: 20200409
  Serious: Yes (Hospitalization)
  Sender: FDA-Public Use
  Company Number: SE-TEVA-2019-SE-1160992

PATIENT
  Sex: Female

DRUGS (7)
  1. OXASCAND [Suspect]
     Active Substance: OXAZEPAM
     Dosage: 50 MG
     Route: 048
     Dates: start: 20190318, end: 20190318
  2. QUETIAPINE. [Suspect]
     Active Substance: QUETIAPINE
     Dosage: 2 GRAM
     Route: 048
     Dates: start: 20190318, end: 20190318
  3. SERTRALINE [Suspect]
     Active Substance: SERTRALINE HYDROCHLORIDE
     Dosage: 800 MG
     Route: 048
     Dates: start: 20190318, end: 20190318
  4. ATARAX [Suspect]
     Active Substance: HYDROXYZINE HYDROCHLORIDE
     Dosage: 1.9 GRAM
     Route: 048
     Dates: start: 20190318, end: 20190318
  5. MIRTAZAPINE. [Suspect]
     Active Substance: MIRTAZAPINE
     Dosage: 315 MG
     Route: 048
     Dates: start: 20190318, end: 20190318
  6. PROPAVAN [Suspect]
     Active Substance: PROPIOMAZINE
     Dosage: 1 GRAM
     Route: 048
     Dates: start: 20190318, end: 20190318
  7. IBUPROFEN. [Suspect]
     Active Substance: IBUPROFEN
     Dosage: 3.6 GRAM
     Route: 048
     Dates: start: 20190318, end: 20190318

REACTIONS (3)
  - Depressed level of consciousness [Unknown]
  - Intentional self-injury [Unknown]
  - Intentional overdose [Unknown]

NARRATIVE: CASE EVENT DATE: 20190318
